FAERS Safety Report 13049678 (Version 3)
Quarter: 2017Q2

REPORT INFORMATION
  Report Type: Spontaneous
  Country: IT (occurrence: IT)
  Receive Date: 20161221
  Receipt Date: 20170602
  Transmission Date: 20170830
  Serious: Yes (Death, Other)
  Sender: FDA-Public Use
  Company Number: IT-APOTEX-2016AP016011

PATIENT
  Age: 48 Year
  Sex: Female

DRUGS (2)
  1. MICOFENOLATOMOFETIL CRINOS COMPRESSE RIVESTITE CON FILM [Suspect]
     Active Substance: MYCOPHENOLATE MOFETIL
     Indication: UNDIFFERENTIATED CONNECTIVE TISSUE DISEASE
     Dosage: 1000 MG, BID
     Route: 065
  2. PREDNISONE. [Suspect]
     Active Substance: PREDNISONE
     Indication: UNDIFFERENTIATED CONNECTIVE TISSUE DISEASE
     Dosage: 50 MG, QD
     Route: 065

REACTIONS (2)
  - Cerebral toxoplasmosis [Fatal]
  - Multiple organ dysfunction syndrome [Fatal]
